FAERS Safety Report 8106344-4 (Version None)
Quarter: 2012Q1

REPORT INFORMATION
  Report Type: 
  Country: None (occurrence: None)
  Receive Date: 20120202
  Receipt Date: 20120126
  Transmission Date: 20120608
  Serious: Yes (Hospitalization, Other)
  Sender: FDA-Public Use
  Company Number: US-JNJFOC-20110308029

PATIENT
  Sex: Female
  Weight: 62.14 kg

DRUGS (7)
  1. DURAGESIC-100 [Suspect]
     Indication: BACK PAIN
     Route: 062
     Dates: start: 20030101
  2. UNKNOWN MULTIPLE MEDICATION [Concomitant]
     Indication: DEAFNESS
     Route: 065
  3. UNKNOWN MULTIPLE MEDICATION [Concomitant]
     Indication: PAIN
     Route: 065
  4. DURAGESIC-100 [Suspect]
     Dosage: 150 UG/HR (100UG/HR + 50 UG/HR)
     Route: 062
     Dates: start: 19960101
  5. DURAGESIC-100 [Suspect]
     Route: 062
  6. DURAGESIC-100 [Suspect]
     Route: 062
  7. UNKNOWN MULTIPLE MEDICATION [Concomitant]
     Indication: INTERVERTEBRAL DISC PROTRUSION
     Route: 065

REACTIONS (15)
  - RASH [None]
  - UTERINE CANCER [None]
  - PREMATURE MENOPAUSE [None]
  - PRODUCT QUALITY ISSUE [None]
  - WEIGHT DECREASED [None]
  - BACK PAIN [None]
  - APPLICATION SITE VESICLES [None]
  - HYPERHIDROSIS [None]
  - APPLICATION SITE HYPERSENSITIVITY [None]
  - DYSPEPSIA [None]
  - ENDOMETRIAL CANCER [None]
  - LACTOSE INTOLERANCE [None]
  - DEAFNESS [None]
  - APPLICATION SITE IRRITATION [None]
  - PRODUCT ADHESION ISSUE [None]
